FAERS Safety Report 7537347-6 (Version None)
Quarter: 2011Q2

REPORT INFORMATION
  Report Type: 
  Country: None (occurrence: None)
  Receive Date: 20110609
  Receipt Date: 20110606
  Transmission Date: 20111010
  Serious: Yes (Disabling, Other)
  Sender: FDA-Public Use
  Company Number: US-MERCK-0805USA06570

PATIENT
  Age: 63 Year
  Sex: Female
  Weight: 59 kg

DRUGS (7)
  1. FOSAMAX [Suspect]
     Indication: OSTEOPENIA
     Route: 048
     Dates: start: 20050114, end: 20060614
  2. MAXAIR [Concomitant]
     Route: 055
     Dates: start: 19900101, end: 20080101
  3. VITAMIN D (UNSPECIFIED) [Concomitant]
     Indication: OSTEOPOROSIS
     Route: 065
     Dates: start: 20010101, end: 20080101
  4. MAXAIR [Concomitant]
     Indication: ASTHMA
     Route: 055
     Dates: start: 19900101, end: 20080101
  5. PRILOSEC [Concomitant]
     Indication: GASTROOESOPHAGEAL REFLUX DISEASE
     Route: 048
     Dates: start: 19960101
  6. FOSAMAX [Suspect]
     Indication: OSTEOPOROSIS
     Route: 048
     Dates: start: 20050114, end: 20060614
  7. HORMONES (UNSPECIFIED) [Concomitant]
     Route: 065
     Dates: start: 20000101, end: 20060101

REACTIONS (19)
  - OSTEONECROSIS OF JAW [None]
  - BURSITIS [None]
  - RHINITIS [None]
  - TEMPOROMANDIBULAR JOINT SYNDROME [None]
  - JAW DISORDER [None]
  - FIBROMATOSIS [None]
  - ORAL PAIN [None]
  - GINGIVAL PAIN [None]
  - JOINT DISLOCATION [None]
  - INJECTION SITE PAIN [None]
  - POLIOMYELITIS [None]
  - ARTHRALGIA [None]
  - URINARY INCONTINENCE [None]
  - BRONCHIECTASIS [None]
  - BRONCHITIS [None]
  - EMPHYSEMA [None]
  - BASAL CELL CARCINOMA [None]
  - ADVERSE DRUG REACTION [None]
  - DYSPNOEA PAROXYSMAL NOCTURNAL [None]
